FAERS Safety Report 9809438 (Version 2)
Quarter: 2014Q1

REPORT INFORMATION
  Report Type: Spontaneous
  Country: US (occurrence: US)
  Receive Date: 20140110
  Receipt Date: 20140128
  Transmission Date: 20141002
  Serious: Yes (Hospitalization)
  Sender: FDA-Public Use
  Company Number: US-LUNDBECK-DKLU1096467

PATIENT
  Age: 6 Year
  Sex: Male

DRUGS (2)
  1. ONFI [Suspect]
     Indication: LENNOX-GASTAUT SYNDROME
     Route: 048
     Dates: start: 201205, end: 20140102
  2. ONFI [Suspect]
     Route: 048
     Dates: start: 20140102

REACTIONS (7)
  - Fall [Unknown]
  - Laceration [Unknown]
  - Tooth fracture [Unknown]
  - Myoclonic epilepsy [Unknown]
  - Atonic seizures [Unknown]
  - Grand mal convulsion [Unknown]
  - Drug dose omission [Recovered/Resolved]
